FAERS Safety Report 8115495 (Version 3)
Quarter: 2013Q4

REPORT INFORMATION
  Report Type: Spontaneous
  Country: US (occurrence: US)
  Receive Date: 20110831
  Receipt Date: 20131120
  Transmission Date: 20140711
  Serious: Yes (Hospitalization)
  Sender: FDA-Public Use
  Company Number: US-BAYER-2011-079175

PATIENT
  Age: 31 Year
  Sex: Female

DRUGS (3)
  1. YAZ [Suspect]
     Dosage: UNK
     Route: 048
     Dates: start: 2009
  2. MULTIVITAMINS [Concomitant]
  3. ZANTAC [Concomitant]

REACTIONS (4)
  - Gallbladder non-functioning [None]
  - Pain [None]
  - Cholecystitis chronic [None]
  - Biliary dyskinesia [None]
